FAERS Safety Report 14012002 (Version 1)
Quarter: 2017Q3

REPORT INFORMATION
  Report Type: Spontaneous
  Country: US (occurrence: US)
  Receive Date: 20170926
  Receipt Date: 20170926
  Transmission Date: 20171128
  Serious: Yes (Hospitalization, Other)
  Sender: FDA-Public Use
  Company Number: US-TEVA-808582USA

PATIENT
  Age: 72 Year
  Sex: Male
  Weight: 68 kg

DRUGS (8)
  1. RIVAROXABAN [Suspect]
     Active Substance: RIVAROXABAN
  2. ACICLOVIR [Suspect]
     Active Substance: ACYCLOVIR
     Indication: HERPES ZOSTER
     Route: 065
  3. FLUOXETINE [Interacting]
     Active Substance: FLUOXETINE HYDROCHLORIDE
     Route: 065
  4. LISINOPRIL. [Interacting]
     Active Substance: LISINOPRIL
     Route: 065
  5. METOPROLOL. [Interacting]
     Active Substance: METOPROLOL
     Route: 065
  6. FENTANYL. [Suspect]
     Active Substance: FENTANYL
     Dosage: 50 MICROG; TWO DOSES
     Route: 042
  7. DIGOXIN. [Suspect]
     Active Substance: DIGOXIN
     Route: 065
  8. TURMERIC [Suspect]
     Active Substance: HERBALS\TURMERIC
     Route: 065

REACTIONS (2)
  - Serotonin syndrome [Recovered/Resolved]
  - Drug interaction [Recovered/Resolved]
